FAERS Safety Report 17589296 (Version 2)
Quarter: 2021Q2

REPORT INFORMATION
  Report Type: Spontaneous
  Country: US (occurrence: US)
  Receive Date: 20200327
  Receipt Date: 20210413
  Transmission Date: 20210716
  Serious: No
  Sender: FDA-Public Use
  Company Number: US-ALLERGAN-1919946US

PATIENT
  Sex: Female

DRUGS (4)
  1. AVANDIA [Concomitant]
     Active Substance: ROSIGLITAZONE MALEATE
     Indication: ARTHRITIS
     Dosage: UNK, Q MONTH
     Route: 065
  2. BLOOD PRESSURE MEDICATION [Concomitant]
     Active Substance: UNSPECIFIED INGREDIENT
     Indication: HYPERTENSION
     Dosage: UNK
     Route: 065
  3. LUMIGAN [Suspect]
     Active Substance: BIMATOPROST
     Indication: GLAUCOMA
     Dosage: 2 GTT, QPM
     Route: 047
  4. XARELTO [Concomitant]
     Active Substance: RIVAROXABAN
     Indication: BLOOD DISORDER
     Dosage: UNK
     Route: 065

REACTIONS (8)
  - Dry skin [Not Recovered/Not Resolved]
  - Erythema [Not Recovered/Not Resolved]
  - Intraocular pressure increased [Unknown]
  - Skin exfoliation [Not Recovered/Not Resolved]
  - Hypersensitivity [Unknown]
  - Pruritus [Not Recovered/Not Resolved]
  - Drug ineffective [Unknown]
  - Conjunctivitis [Unknown]
